FAERS Safety Report 9285573 (Version 3)
Quarter: 2013Q3

REPORT INFORMATION
  Report Type: Report from Study
  Country: CA (occurrence: CA)
  Receive Date: 20130513
  Receipt Date: 20130712
  Transmission Date: 20140515
  Serious: Yes (Death, Other)
  Sender: FDA-Public Use
  Company Number: PHHY2013CA046096

PATIENT
  Age: 67 Year
  Sex: Male

DRUGS (2)
  1. ZOMETA [Suspect]
     Indication: RENAL CELL CARCINOMA
     Dosage: 3.3 MG, 2 MONTHS
     Route: 042
     Dates: start: 20130113
  2. ZOMETA [Suspect]
     Dosage: 4 MG, EVERY 2 MONTHS
     Route: 042
     Dates: end: 20130531

REACTIONS (3)
  - Death [Fatal]
  - General physical health deterioration [Unknown]
  - Poor venous access [Unknown]
